FAERS Safety Report 10462256 (Version 1)
Quarter: 2014Q3

REPORT INFORMATION
  Report Type: Spontaneous
  Country: JP (occurrence: JP)
  Receive Date: 20140918
  Receipt Date: 20140918
  Transmission Date: 20150326
  Serious: Yes (Hospitalization)
  Sender: FDA-Public Use
  Company Number: JP-GLAXOSMITHKLINE-B1030239A

PATIENT
  Age: 3 Decade
  Sex: Female

DRUGS (4)
  1. HYPNOTIC + SEDATIVE [Concomitant]
     Route: 048
  2. UNKNOWN PSYCHOTROPIC [Concomitant]
     Route: 048
  3. ANXIOLYTIC [Concomitant]
     Route: 048
  4. LAMICTAL [Suspect]
     Active Substance: LAMOTRIGINE
     Indication: DEPRESSION
     Dosage: 100MG PER DAY
     Route: 048

REACTIONS (4)
  - Liver function test abnormal [Recovering/Resolving]
  - Hepatic function abnormal [Recovering/Resolving]
  - Suicide attempt [Unknown]
  - Intentional overdose [Unknown]

NARRATIVE: CASE EVENT DATE: 2014
